FAERS Safety Report 8015564-9 (Version None)
Quarter: 2011Q4

REPORT INFORMATION
  Report Type: 
  Country: None (occurrence: None)
  Receive Date: 20111230
  Receipt Date: 20111220
  Transmission Date: 20120403
  Serious: Yes (Hospitalization)
  Sender: FDA-Public Use
  Company Number: JP-ELI_LILLY_AND_COMPANY-JP201009008035

PATIENT
  Sex: Female
  Weight: 50 kg

DRUGS (13)
  1. EVISTA [Suspect]
     Indication: OSTEOPOROSIS
     Dosage: 60 MG, DAILY (1/D)
     Route: 048
     Dates: start: 20090801, end: 20091112
  2. DOGMATYL [Concomitant]
     Dosage: 50 MG, 2/D
     Route: 065
     Dates: start: 20030101
  3. MAGNESIUM OXIDE [Concomitant]
     Dosage: 1 G, 2/D
     Route: 065
     Dates: start: 20070101
  4. LANSOPRAZOLE [Concomitant]
     Dosage: 15 MG, UNK
     Route: 048
     Dates: start: 20070101
  5. NITRAZEPAM [Concomitant]
     Dosage: 5 MG, DAILY (1/D)
     Route: 065
     Dates: start: 20070101
  6. LORAZEPAM [Concomitant]
     Route: 065
     Dates: start: 20070201
  7. MECOBALAMIN [Concomitant]
     Dosage: 500 MG, 2/D
     Route: 065
     Dates: start: 20030101
  8. LAC B [Concomitant]
     Dosage: UNK G, 2/D
     Route: 048
     Dates: start: 20070101
  9. PARIET /JPN/ [Concomitant]
     Dosage: 10 MG, DAILY (1/D)
     Route: 065
     Dates: start: 20050101
  10. PRIMPERAN TAB [Concomitant]
     Dosage: 5 MG, 3/D
     Route: 065
     Dates: start: 20040101
  11. PAXIL [Concomitant]
     Route: 065
     Dates: start: 20070201
  12. HIRNAMIN [Concomitant]
     Route: 065
     Dates: start: 20070201
  13. ROHYPNOL [Concomitant]
     Route: 065
     Dates: start: 20070201

REACTIONS (1)
  - HEPATIC STEATOSIS [None]
